FAERS Safety Report 24623654 (Version 1)
Quarter: 2024Q4

REPORT INFORMATION
  Report Type: Spontaneous
  Country: CZ (occurrence: CZ)
  Receive Date: 20241115
  Receipt Date: 20241115
  Transmission Date: 20250114
  Serious: Yes (Death, Other)
  Sender: RANBAXY
  Company Number: CZ-SUN PHARMACEUTICAL INDUSTRIES LTD-2024RR-479352

PATIENT
  Age: 67 Year
  Sex: Female

DRUGS (6)
  1. GEMCITABINE [Suspect]
     Active Substance: GEMCITABINE
     Indication: Transitional cell carcinoma
     Dosage: 4 CYCLES
     Route: 065
     Dates: start: 201901, end: 201904
  2. GEMCITABINE [Suspect]
     Active Substance: GEMCITABINE
     Dosage: 4 CYCLES
     Route: 065
     Dates: start: 202206, end: 202208
  3. CISPLATIN [Suspect]
     Active Substance: CISPLATIN
     Indication: Transitional cell carcinoma
     Dosage: 4 CYCLES
     Route: 065
     Dates: start: 201901, end: 201904
  4. CARBOPLATIN [Suspect]
     Active Substance: CARBOPLATIN
     Indication: Transitional cell carcinoma recurrent
     Dosage: 4 CYCLES
     Route: 065
     Dates: start: 202206, end: 202208
  5. CARBOPLATIN [Suspect]
     Active Substance: CARBOPLATIN
     Dosage: WEEKLY, ONLY 1 CYCLE GIVEN
     Route: 065
     Dates: start: 202309
  6. PACLITAXEL [Suspect]
     Active Substance: PACLITAXEL
     Indication: Adenocarcinoma
     Dosage: UNK, WEEKLY, ONLY 1 CYCLE GIVEN
     Route: 065
     Dates: start: 202309

REACTIONS (3)
  - Disease recurrence [Unknown]
  - Therapeutic product effect incomplete [Unknown]
  - Condition aggravated [Fatal]
